FAERS Safety Report 14218343 (Version 1)
Quarter: 2017Q4

REPORT INFORMATION
  Report Type: Spontaneous
  Country: US (occurrence: US)
  Receive Date: 20171123
  Receipt Date: 20171123
  Transmission Date: 20180321
  Serious: No
  Sender: FDA-Public Use
  Company Number: US-GLAXOSMITHKLINE-US2017178644

PATIENT
  Age: 71 Year
  Sex: Male

DRUGS (13)
  1. INCRUSE ELLIPTA [Suspect]
     Active Substance: UMECLIDINIUM BROMIDE
     Indication: PULMONARY HYPERTENSION
  2. GEMFIBROZIL. [Concomitant]
     Active Substance: GEMFIBROZIL
  3. OXYGEN. [Concomitant]
     Active Substance: OXYGEN
  4. PRAMIPEXOLE. [Concomitant]
     Active Substance: PRAMIPEXOLE
  5. LOSARTAN. [Concomitant]
     Active Substance: LOSARTAN
  6. BREO ELLIPTA [Suspect]
     Active Substance: FLUTICASONE FUROATE\VILANTEROL TRIFENATATE
     Indication: PULMONARY HYPERTENSION
  7. OMEPRAZOLE. [Concomitant]
     Active Substance: OMEPRAZOLE
  8. BREO ELLIPTA [Suspect]
     Active Substance: FLUTICASONE FUROATE\VILANTEROL TRIFENATATE
     Indication: DYSPNOEA
     Dosage: 1 PUFF(S), QD
     Route: 055
     Dates: start: 201711
  9. INCRUSE ELLIPTA [Suspect]
     Active Substance: UMECLIDINIUM BROMIDE
     Indication: DYSPNOEA
     Dosage: 1 PUFF(S), QD
     Route: 055
     Dates: start: 201711
  10. SIMVASTATIN. [Concomitant]
     Active Substance: SIMVASTATIN
  11. FLUTICASONE NASAL SPRAY [Concomitant]
     Active Substance: FLUTICASONE
  12. FUROSEMIDE. [Concomitant]
     Active Substance: FUROSEMIDE
  13. METFORMIN [Concomitant]
     Active Substance: METFORMIN HYDROCHLORIDE

REACTIONS (2)
  - Dysphonia [Not Recovered/Not Resolved]
  - Product use in unapproved indication [Unknown]

NARRATIVE: CASE EVENT DATE: 201711
